FAERS Safety Report 11509591 (Version 1)
Quarter: 2015Q3

REPORT INFORMATION
  Report Type: Spontaneous
  Country: US (occurrence: US)
  Receive Date: 20150915
  Receipt Date: 20150915
  Transmission Date: 20151125
  Serious: No
  Sender: FDA-Public Use
  Company Number: US-JNJFOC-20150722535

PATIENT
  Age: 91 Year
  Sex: Female
  Weight: 54.43 kg

DRUGS (2)
  1. TYLENOL REGULAR STRENGTH [Suspect]
     Active Substance: ACETAMINOPHEN
     Indication: SLEEP DISORDER THERAPY
     Dosage: EVERY NIGHT
     Route: 048
     Dates: end: 20150729
  2. CHILDRENS ADVIL [Concomitant]
     Active Substance: IBUPROFEN
     Indication: SLEEP DISORDER THERAPY
     Dosage: ONE PER NIGHT
     Route: 065

REACTIONS (3)
  - Product use issue [Unknown]
  - Therapeutic response unexpected [Unknown]
  - Constipation [Not Recovered/Not Resolved]
